FAERS Safety Report 6249506-3 (Version None)
Quarter: 2009Q2

REPORT INFORMATION
  Report Type: 
  Country: None (occurrence: None)
  Receive Date: 20090629
  Receipt Date: 20090616
  Transmission Date: 20091009
  Serious: Yes (Other)
  Sender: FDA-Public Use
  Company Number: B0578964A

PATIENT

DRUGS (1)
  1. CEFTAZIDIME [Suspect]

REACTIONS (4)
  - FACE OEDEMA [None]
  - LIVER DISORDER [None]
  - PYREXIA [None]
  - RASH [None]
